FAERS Safety Report 17810035 (Version 2)
Quarter: 2020Q2

REPORT INFORMATION
  Report Type: Report from Study
  Country: None (occurrence: CO)
  Receive Date: 20200521
  Receipt Date: 20200626
  Transmission Date: 20200714
  Serious: Yes (Other)
  Sender: FDA-Public Use
  Company Number: CO-ABBVIE-20K-036-3370579-00

PATIENT
  Age: 66 Year
  Sex: Female
  Weight: 62 kg

DRUGS (3)
  1. HUMIRA [Suspect]
     Active Substance: ADALIMUMAB
     Route: 058
     Dates: start: 20181109
  2. HUMIRA [Suspect]
     Active Substance: ADALIMUMAB
     Indication: RHEUMATOID ARTHRITIS
     Route: 058
     Dates: end: 201809
  3. ESOMEPRAZOLE. [Concomitant]
     Active Substance: ESOMEPRAZOLE MAGNESIUM
     Indication: GASTRITIS
     Route: 048

REACTIONS (11)
  - Arthralgia [Not Recovered/Not Resolved]
  - Vitamin D deficiency [Recovering/Resolving]
  - Hypersensitivity [Recovering/Resolving]
  - Arthrodesis [Unknown]
  - Gait disturbance [Recovering/Resolving]
  - Osteoporosis [Recovering/Resolving]
  - Nasal congestion [Recovering/Resolving]
  - Joint swelling [Recovering/Resolving]
  - Mobility decreased [Unknown]
  - Arthritis [Not Recovered/Not Resolved]
  - Hypertension [Recovering/Resolving]

NARRATIVE: CASE EVENT DATE: 201809
